FAERS Safety Report 22588864 (Version 1)
Quarter: 2023Q2

REPORT INFORMATION
  Report Type: Spontaneous
  Country: US (occurrence: None)
  Receive Date: 20230609
  Receipt Date: 20230609
  Transmission Date: 20230721
  Serious: Yes (Death)
  Sender: FDA-Public Use
  Company Number: None

PATIENT
  Age: 46 Year
  Sex: Male
  Weight: 101 kg

DRUGS (8)
  1. FERUMOXYTOL [Suspect]
     Active Substance: FERUMOXYTOL
     Indication: Thrombosis
     Dosage: 210 MG ONCE INTRAVENOUS DRIP?
     Route: 041
     Dates: start: 20220129, end: 20220129
  2. TETRAFERRIC TRICITRATE DECAHYDRATE [Concomitant]
     Active Substance: TETRAFERRIC TRICITRATE DECAHYDRATE
  3. ACETAMINOPHEN [Concomitant]
     Active Substance: ACETAMINOPHEN
  4. ASPIRIN [Concomitant]
     Active Substance: ASPIRIN
  5. VALACYCLOVIR [Concomitant]
     Active Substance: VALACYCLOVIR HYDROCHLORIDE
  6. MYCOPHENOLIC ACID [Concomitant]
     Active Substance: MYCOPHENOLIC ACID
  7. TACROLIMUS [Concomitant]
     Active Substance: TACROLIMUS
  8. PREDNISONE [Concomitant]
     Active Substance: PREDNISONE

REACTIONS (8)
  - Product dispensing issue [None]
  - Haemoglobin decreased [None]
  - Urine output increased [None]
  - Magnetic resonance imaging hepatobiliary abnormal [None]
  - International normalised ratio decreased [None]
  - Diarrhoea [None]
  - Haematochezia [None]
  - Blood creatinine increased [None]

NARRATIVE: CASE EVENT DATE: 20220129
